FAERS Safety Report 8818305 (Version 1)
Quarter: 2012Q4

REPORT INFORMATION
  Report Type: 
  Country: ES (occurrence: ES)
  Receive Date: 20121001
  Receipt Date: 20121001
  Transmission Date: 20130627
  Serious: Yes (Other)
  Sender: FDA-Public Use
  Company Number: ES-MERCK-1210ESP000229

PATIENT

DRUGS (3)
  1. VICTRELIS [Suspect]
     Route: 048
     Dates: start: 20120213, end: 20120601
  2. PEGINTRON [Suspect]
     Route: 058
     Dates: start: 20120213, end: 20120601
  3. RIBAVIRIN [Suspect]
     Route: 048
     Dates: start: 20120213, end: 20120601

REACTIONS (1)
  - Anaemia [Unknown]
